FAERS Safety Report 9390721 (Version 1)
Quarter: 2013Q3

REPORT INFORMATION
  Report Type: Spontaneous
  Country: GB (occurrence: GB)
  Receive Date: 20130709
  Receipt Date: 20130709
  Transmission Date: 20140515
  Serious: Yes (Other)
  Sender: FDA-Public Use
  Company Number: GB-UCBSA-091126

PATIENT
  Age: 12 Year
  Sex: Female
  Weight: 30 kg

DRUGS (10)
  1. EQUASYM [Suspect]
     Indication: ATTENTION DEFICIT/HYPERACTIVITY DISORDER
     Dosage: GRADUALLY INCREASING DOSING INCREMENTS OF 5 MG
     Route: 048
     Dates: start: 2007
  2. EQUASYM [Suspect]
     Indication: ATTENTION DEFICIT/HYPERACTIVITY DISORDER
     Dosage: 15 MG
     Route: 048
  3. EQUASYM [Suspect]
     Indication: ATTENTION DEFICIT/HYPERACTIVITY DISORDER
     Dosage: 10 MG
     Route: 048
  4. EQUASYM [Suspect]
     Indication: ATTENTION DEFICIT/HYPERACTIVITY DISORDER
     Dosage: 7.5 MG (EVERY MORNING ON SCHOOL DAYS)
     Route: 048
  5. EQUASYM [Suspect]
     Indication: ATTENTION DEFICIT/HYPERACTIVITY DISORDER
     Dosage: 5 MG (NON SCHOOL DAYS)
     Route: 048
  6. EQUASYM [Suspect]
     Indication: ATTENTION DEFICIT/HYPERACTIVITY DISORDER
     Dosage: 10MG IN MORNING AND 5 MG IN AFTERNOON
     Route: 048
     Dates: end: 2008
  7. EQUASYM XL [Suspect]
     Dosage: 10 MG
  8. EQUASYM XL [Suspect]
     Dosage: 20 MG
  9. METHYLPHENIDATE [Suspect]
     Indication: ATTENTION DEFICIT/HYPERACTIVITY DISORDER
     Dosage: AFTERNOON
     Route: 048
     Dates: start: 20130107, end: 20130108
  10. MELATONIN [Concomitant]

REACTIONS (6)
  - Pallor [Recovered/Resolved]
  - Fatigue [Recovered/Resolved]
  - Victim of abuse [Unknown]
  - Emotional disorder [Unknown]
  - Feeling abnormal [Unknown]
  - Social avoidant behaviour [Unknown]
